FAERS Safety Report 9738839 (Version 1)
Quarter: 2013Q4

REPORT INFORMATION
  Report Type: Spontaneous
  Country: US (occurrence: US)
  Receive Date: 20131209
  Receipt Date: 20131209
  Transmission Date: 20140711
  Serious: No
  Sender: FDA-Public Use
  Company Number: US-PFIZER INC-2013351081

PATIENT
  Age: 62 Year
  Sex: Male
  Weight: 67.12 kg

DRUGS (6)
  1. LYRICA [Suspect]
     Indication: NEUROPATHY PERIPHERAL
     Dosage: 50 MG, 2X/DAY
     Dates: start: 2013
  2. DYAZIDE [Concomitant]
     Indication: CARDIAC DISORDER
     Dosage: (HYDROCHLOROTHIAZIDE 25MG AND TRIAMTERENE 37.5MG)/1X/DAY
  3. LOPRESSOR [Concomitant]
     Indication: HYPERTENSION
     Dosage: 50 MG, DAILY
  4. CETIRIZINE [Concomitant]
     Indication: HYPERSENSITIVITY
     Dosage: 10 MG, DAILY
  5. BABY ASPIRIN [Concomitant]
     Indication: CARDIAC DISORDER
     Dosage: 81 MG, DAILY
  6. ALPRAZOLAM [Concomitant]
     Indication: ANXIETY
     Dosage: 1.8 MG, 3X/DAY

REACTIONS (1)
  - Drug ineffective [Unknown]
